FAERS Safety Report 18755316 (Version 1)
Quarter: 2021Q1

REPORT INFORMATION
  Report Type: Spontaneous
  Country: US (occurrence: US)
  Receive Date: 20210115
  Receipt Date: 20210115
  Transmission Date: 20210419
  Serious: Yes (Other)
  Sender: FDA-Public Use
  Company Number: None

PATIENT
  Age: 50 Year
  Sex: Female

DRUGS (1)
  1. HUMIRA [Suspect]
     Active Substance: ADALIMUMAB
     Dates: start: 20201201, end: 20201210

REACTIONS (5)
  - Nervous system disorder [None]
  - Sinusitis [None]
  - Speech disorder [None]
  - Memory impairment [None]
  - Headache [None]

NARRATIVE: CASE EVENT DATE: 20201211
